FAERS Safety Report 18240561 (Version 1)
Quarter: 2020Q3

REPORT INFORMATION
  Report Type: Spontaneous
  Country: US (occurrence: US)
  Receive Date: 20200904
  Receipt Date: 20200904
  Transmission Date: 20201103
  Serious: Yes (Hospitalization)
  Sender: FDA-Public Use
  Company Number: None

PATIENT
  Age: 44 Year
  Sex: Male
  Weight: 58.69 kg

DRUGS (1)
  1. NIVOLUMAB 240MG [Suspect]
     Active Substance: NIVOLUMAB
     Indication: ANAPLASTIC OLIGODENDROGLIOMA
     Dosage: ?          OTHER ROUTE:IV?
     Dates: start: 20161109, end: 20161207

REACTIONS (6)
  - Mental status changes [None]
  - Disease progression [None]
  - Pyrexia [None]
  - Psychotic disorder [None]
  - Tachycardia [None]
  - Seizure [None]
